FAERS Safety Report 11513108 (Version 1)
Quarter: 2015Q3

REPORT INFORMATION
  Report Type: Spontaneous
  Country: US (occurrence: US)
  Receive Date: 20150916
  Receipt Date: 20150916
  Transmission Date: 20151125
  Serious: No
  Sender: FDA-Public Use
  Company Number: US-GLENMARK PHARMACEUTICALS INC, USA.-2014GMK011428

PATIENT
  Age: 19 Year
  Sex: Female

DRUGS (13)
  1. LUPRON [Suspect]
     Active Substance: LEUPROLIDE ACETATE
     Dosage: 3.75 MG / MONTH
     Dates: start: 201408
  2. LUPRON [Suspect]
     Active Substance: LEUPROLIDE ACETATE
     Dosage: 3.75 MG / MONTH AS SECOND INJECTION
     Dates: start: 20140927
  3. DYMISTA [Concomitant]
     Active Substance: AZELASTINE HYDROCHLORIDE\FLUTICASONE PROPIONATE
     Dosage: UNK UNK, HS
  4. FOLIC ACID. [Concomitant]
     Active Substance: FOLIC ACID
     Dosage: 4 MG, QD
  5. CALCIUM [Concomitant]
     Active Substance: CALCIUM
     Dosage: UNK, QD
  6. NORETHINDRONE ACETATE TABLETS [Suspect]
     Active Substance: NORETHINDRONE ACETATE
     Dosage: 5 MG, OD
     Dates: start: 201408
  7. ADVIL [Concomitant]
     Active Substance: IBUPROFEN
     Dosage: UNK, PRN
  8. WELLBUTRIN [Concomitant]
     Active Substance: BUPROPION HYDROCHLORIDE
     Dosage: 100 MG, BID
  9. LUPRON [Suspect]
     Active Substance: LEUPROLIDE ACETATE
     Dosage: 3.75 MG / MONTH
     Dates: start: 20130528, end: 201311
  10. ZYRTEC [Concomitant]
     Active Substance: CETIRIZINE HYDROCHLORIDE
     Dosage: 1 DF, QD
  11. TRAMADOL. [Concomitant]
     Active Substance: TRAMADOL
     Dosage: 50 MG EVERY 6 HOURS AS NEEDED
  12. NORETHINDRONE ACETATE TABLETS [Suspect]
     Active Substance: NORETHINDRONE ACETATE
     Dosage: 5 MG, OD
     Route: 048
     Dates: start: 201305
  13. ZYRTEC-D [Concomitant]
     Active Substance: CETIRIZINE HYDROCHLORIDE\PSEUDOEPHEDRINE HYDROCHLORIDE
     Dosage: UNK, QD

REACTIONS (6)
  - Fatigue [Not Recovered/Not Resolved]
  - Somnolence [Not Recovered/Not Resolved]
  - Muscle spasms [Not Recovered/Not Resolved]
  - Headache [Not Recovered/Not Resolved]
  - Throat tightness [Not Recovered/Not Resolved]
  - Nausea [Unknown]

NARRATIVE: CASE EVENT DATE: 20130601
